FAERS Safety Report 10297392 (Version 2)
Quarter: 2014Q3

REPORT INFORMATION
  Report Type: Spontaneous
  Country: FR (occurrence: FR)
  Receive Date: 20140711
  Receipt Date: 20140711
  Transmission Date: 20150326
  Serious: Yes (Hospitalization)
  Sender: FDA-Public Use
  Company Number: FR-SANOFI-AVENTIS-2010SA014537

PATIENT
  Age: 60 Year
  Sex: Male

DRUGS (4)
  1. FOSFOCINE [Suspect]
     Active Substance: FOSFOMYCIN
     Indication: SPINAL CORD INFECTION
     Route: 042
     Dates: start: 20080301, end: 20080401
  2. CEFOTAXIME [Suspect]
     Active Substance: CEFOTAXIME\CEFOTAXIME SODIUM
     Indication: SPINAL CORD INFECTION
     Route: 042
     Dates: start: 20080301, end: 20080401
  3. VANCOMYCINE [Suspect]
     Active Substance: VANCOMYCIN
     Indication: SPINAL CORD INFECTION
     Route: 042
     Dates: start: 20080301, end: 20080401
  4. INIPOMP [Suspect]
     Active Substance: PANTOPRAZOLE SODIUM
     Indication: SPINAL CORD INFECTION
     Route: 048
     Dates: start: 20080318, end: 20080330

REACTIONS (6)
  - Oedema genital [Recovered/Resolved]
  - Face oedema [Recovered/Resolved]
  - Rash maculo-papular [Recovered/Resolved]
  - Pyrexia [Recovered/Resolved]
  - Hepatitis [Recovered/Resolved]
  - Agranulocytosis [Recovered/Resolved]

NARRATIVE: CASE EVENT DATE: 20080329
